FAERS Safety Report 14693021 (Version 4)
Quarter: 2018Q2

REPORT INFORMATION
  Report Type: Spontaneous
  Country: US (occurrence: US)
  Receive Date: 20180329
  Receipt Date: 20180514
  Transmission Date: 20180711
  Serious: Yes (Life-Threatening, Hospitalization, Other)
  Sender: FDA-Public Use
  Company Number: PHEH2018US011332

PATIENT
  Age: 42 Year
  Sex: Female

DRUGS (11)
  1. ONDANSETRON [Concomitant]
     Active Substance: ONDANSETRON
     Indication: PRODUCT USED FOR UNKNOWN INDICATION
     Dosage: UNK
     Route: 065
  2. HYDROCHLOROTHIAZIDE. [Concomitant]
     Active Substance: HYDROCHLOROTHIAZIDE
     Indication: PRODUCT USED FOR UNKNOWN INDICATION
     Dosage: UNK
     Route: 065
  3. GILENYA [Suspect]
     Active Substance: FINGOLIMOD HYDROCHLORIDE
     Dosage: 0.5 MG, QD
     Route: 048
     Dates: start: 20171005, end: 20180322
  4. HYDRODIURIL [Concomitant]
     Active Substance: HYDROCHLOROTHIAZIDE
     Indication: HYPERTENSION
     Dosage: UNK
     Route: 065
  5. KENALOG [Concomitant]
     Active Substance: TRIAMCINOLONE ACETONIDE
     Indication: PRODUCT USED FOR UNKNOWN INDICATION
     Dosage: APPLY ON CHEST AND BACK 1-2 TIMES A DAY, PRN
     Route: 065
  6. TRIAMCINOLONE ACETONIDE. [Concomitant]
     Active Substance: TRIAMCINOLONE ACETONIDE
     Indication: PRODUCT USED FOR UNKNOWN INDICATION
     Dosage: UNK
     Route: 065
  7. GILENYA [Suspect]
     Active Substance: FINGOLIMOD HYDROCHLORIDE
     Indication: RELAPSING-REMITTING MULTIPLE SCLEROSIS
     Dosage: 0.5 MG, QD
     Route: 048
     Dates: start: 201508
  8. BENZOYL PEROXIDE. [Concomitant]
     Active Substance: BENZOYL PEROXIDE
     Indication: PRODUCT USED FOR UNKNOWN INDICATION
     Dosage: UNK
     Route: 065
  9. ALBUTEROL. [Concomitant]
     Active Substance: ALBUTEROL
     Indication: PRODUCT USED FOR UNKNOWN INDICATION
     Dosage: UNK
     Route: 065
  10. PANOXYL [Concomitant]
     Active Substance: BENZOYL PEROXIDE
     Indication: PRODUCT USED FOR UNKNOWN INDICATION
     Dosage: WASH FACE, CHEST AND BACK DAILY
     Route: 065
  11. ESIDRIX [Concomitant]
     Active Substance: HYDROCHLOROTHIAZIDE
     Indication: HYPERTENSION
     Route: 065

REACTIONS (55)
  - Syncope [Unknown]
  - Acute left ventricular failure [Unknown]
  - Acute respiratory failure [Recovered/Resolved]
  - Mitral valve incompetence [Unknown]
  - Aortic valve incompetence [Unknown]
  - Mitral valve thickening [Unknown]
  - Tricuspid valve incompetence [Unknown]
  - Alanine aminotransferase increased [Unknown]
  - Aortic valve thickening [Unknown]
  - Crying [Unknown]
  - Heart rate increased [Unknown]
  - Hypoventilation [Unknown]
  - Hepatic steatosis [Unknown]
  - Irregular breathing [Unknown]
  - Left ventricular dysfunction [Unknown]
  - Gingival disorder [Unknown]
  - Encephalopathy [Recovered/Resolved]
  - Loss of consciousness [Unknown]
  - Electrocardiogram QRS complex abnormal [Unknown]
  - Bruxism [Unknown]
  - Pleural effusion [Unknown]
  - Electrocardiogram QT prolonged [Recovered/Resolved]
  - Pneumonia [Unknown]
  - Blood glucose increased [Unknown]
  - Electrocardiogram T wave abnormal [Recovered/Resolved]
  - Left ventricular hypertrophy [Unknown]
  - Oesophagitis [Unknown]
  - Oxygen saturation decreased [Unknown]
  - Herpes simplex [Unknown]
  - Diarrhoea [Unknown]
  - Abdominal pain [Unknown]
  - Cardiac arrest [Recovered/Resolved]
  - Atrial fibrillation [Unknown]
  - Aspartate aminotransferase increased [Unknown]
  - Abdominal pain upper [Unknown]
  - Lactose intolerance [Unknown]
  - Left atrial enlargement [Unknown]
  - Torsade de pointes [Recovered/Resolved]
  - Generalised tonic-clonic seizure [Recovered/Resolved]
  - Obesity [Unknown]
  - Pulmonary valve incompetence [Unknown]
  - Gastrooesophageal reflux disease [Unknown]
  - PO2 increased [Unknown]
  - Lymphocyte count decreased [Unknown]
  - Ventricular tachycardia [Recovered/Resolved]
  - Nausea [Recovered/Resolved]
  - Arrhythmia [Recovered/Resolved]
  - Dysphagia [Unknown]
  - Odynophagia [Unknown]
  - Genital herpes [Unknown]
  - Vomiting [Recovered/Resolved]
  - Cardiac failure [Unknown]
  - Mitral valve calcification [Unknown]
  - Pruritus [Unknown]
  - Fatigue [Unknown]

NARRATIVE: CASE EVENT DATE: 20151028
